FAERS Safety Report 7372288-9 (Version None)
Quarter: 2011Q1

REPORT INFORMATION
  Report Type: 
  Country: None (occurrence: None)
  Receive Date: 20110324
  Receipt Date: 20110317
  Transmission Date: 20110831
  Serious: Yes (Other)
  Sender: FDA-Public Use
  Company Number: A0919510A

PATIENT
  Age: 39 Year
  Sex: Female
  Weight: 90.9 kg

DRUGS (3)
  1. PAXIL [Suspect]
     Dosage: 20MG UNKNOWN
  2. LEVOTHYROXINE SODIUM [Concomitant]
  3. ZOLOFT [Suspect]
     Indication: PANIC REACTION
     Dosage: 25MG UNKNOWN
     Route: 048
     Dates: start: 20030301

REACTIONS (4)
  - HOMICIDAL IDEATION [None]
  - DIZZINESS [None]
  - WEIGHT INCREASED [None]
  - WITHDRAWAL SYNDROME [None]
